FAERS Safety Report 7454923-X (Version None)
Quarter: 2011Q2

REPORT INFORMATION
  Report Type: 
  Country: None (occurrence: None)
  Receive Date: 20110503
  Receipt Date: 20110428
  Transmission Date: 20111010
  Serious: Yes (Hospitalization)
  Sender: FDA-Public Use
  Company Number: TR-SANOFI-AVENTIS-2009SA008475

PATIENT
  Age: 12 Year
  Sex: Female

DRUGS (8)
  1. ISONIAZID [Suspect]
     Route: 065
  2. PYRAZINAMIDE [Suspect]
     Route: 065
  3. PYRAZINAMIDE [Suspect]
     Indication: PULMONARY TUBERCULOSIS
     Route: 065
  4. ISONIAZID [Suspect]
     Indication: PULMONARY TUBERCULOSIS
     Route: 065
  5. ETHAMBUTOL HYDROCHLORIDE [Suspect]
     Route: 065
  6. ETHAMBUTOL HYDROCHLORIDE [Suspect]
     Indication: PULMONARY TUBERCULOSIS
     Route: 065
  7. RIFAMPICIN [Suspect]
     Indication: PULMONARY TUBERCULOSIS
     Route: 065
  8. RIFAMPICIN [Suspect]
     Route: 065

REACTIONS (7)
  - SKIN LESION [None]
  - PYREXIA [None]
  - C-REACTIVE PROTEIN INCREASED [None]
  - TACHYCARDIA [None]
  - EOSINOPHILIA [None]
  - HEPATIC ENZYME INCREASED [None]
  - DRUG RASH WITH EOSINOPHILIA AND SYSTEMIC SYMPTOMS [None]
